FAERS Safety Report 10683260 (Version 2)
Quarter: 2016Q4

REPORT INFORMATION
  Report Type: Spontaneous
  Country: US (occurrence: US)
  Receive Date: 20141230
  Receipt Date: 20161017
  Transmission Date: 20170206
  Serious: Yes (Hospitalization, Other)
  Sender: FDA-Public Use
  Company Number: US-PFIZER INC-2014354718

PATIENT
  Age: 54 Year
  Sex: Female

DRUGS (10)
  1. HYDROCORTISONE ACETATE. [Concomitant]
     Active Substance: HYDROCORTISONE ACETATE
     Indication: ADRENAL DISORDER
     Dosage: 20 MG, 1X/DAY
     Dates: start: 2010
  2. METFORMIN [Concomitant]
     Active Substance: METFORMIN HYDROCHLORIDE
     Indication: DIABETES MELLITUS
     Dosage: 500 MG, 1X/DAY
     Dates: start: 2010
  3. VITAMIN B2 [Concomitant]
     Active Substance: RIBOFLAVIN
     Indication: HEADACHE
     Dosage: 200 MG, 2X/DAY
     Dates: start: 2010
  4. VITAMIN D3 [Concomitant]
     Active Substance: CHOLECALCIFEROL
     Dosage: UNK
     Dates: start: 2010
  5. IRON [Concomitant]
     Active Substance: IRON
     Dosage: 65 MG, UNK
     Dates: start: 2010
  6. PAMELOR [Concomitant]
     Active Substance: NORTRIPTYLINE HYDROCHLORIDE
     Indication: HEADACHE
     Dosage: 50 MG, 1X/DAY
     Dates: start: 2010
  7. SOMAVERT [Suspect]
     Active Substance: PEGVISOMANT
     Indication: ACROMEGALY
     Dosage: 30 MG, DAILY
     Route: 058
     Dates: start: 2005
  8. SOMAVERT [Suspect]
     Active Substance: PEGVISOMANT
     Indication: GIGANTISM
  9. DIAMOX SEQUELS [Concomitant]
     Active Substance: ACETAZOLAMIDE
     Dosage: UNK, 2X/DAY
     Dates: start: 2010
  10. BUPROPION. [Concomitant]
     Active Substance: BUPROPION
     Indication: HEADACHE
     Dosage: 150 MG, 2X/DAY
     Dates: start: 2010

REACTIONS (1)
  - Breast cancer [Not Recovered/Not Resolved]

NARRATIVE: CASE EVENT DATE: 201403
